FAERS Safety Report 5502710-1 (Version None)
Quarter: 2007Q4

REPORT INFORMATION
  Report Type: 
  Country: None (occurrence: None)
  Receive Date: 20071031
  Receipt Date: 20071026
  Transmission Date: 20080405
  Serious: Yes (Other)
  Sender: FDA-Public Use
  Company Number: HQWYE803515OCT04

PATIENT
  Sex: Female
  Weight: 74.91 kg

DRUGS (3)
  1. PREMPRO [Suspect]
     Indication: MENOPAUSAL SYMPTOMS
     Dosage: UNSPECIFIED DAILY
     Route: 048
     Dates: start: 19950101, end: 20020301
  2. PROVERA [Suspect]
  3. PREMARIN [Suspect]

REACTIONS (1)
  - BREAST CANCER [None]
